FAERS Safety Report 5897401-1 (Version None)
Quarter: 2008Q3

REPORT INFORMATION
  Report Type: 
  Country: None (occurrence: None)
  Receive Date: 20080829
  Receipt Date: 20080529
  Transmission Date: 20090109
  Serious: No
  Sender: FDA-Public Use
  Company Number: US-1166430

PATIENT
  Sex: Male

DRUGS (1)
  1. NEVANAC [Suspect]
     Dosage: (OPHTHALMIC)
     Route: 047

REACTIONS (1)
  - VISION BLURRED [None]
